FAERS Safety Report 20814894 (Version 1)
Quarter: 2022Q2

REPORT INFORMATION
  Report Type: Spontaneous
  Country: US (occurrence: None)
  Receive Date: 20220511
  Receipt Date: 20220511
  Transmission Date: 20220721
  Serious: No
  Sender: FDA-Public Use
  Company Number: None

PATIENT
  Sex: Female

DRUGS (1)
  1. SKYRIZI [Suspect]
     Active Substance: RISANKIZUMAB-RZAA
     Indication: Psoriasis
     Dosage: OTHER FREQUENCY : EVERY 12 WEEKS ;?
     Route: 030
     Dates: start: 20220207

REACTIONS (4)
  - Appendicitis perforated [None]
  - Alopecia [None]
  - Thermal burn [None]
  - Hypoaesthesia [None]
